FAERS Safety Report 7888937-2 (Version None)
Quarter: 2011Q4

REPORT INFORMATION
  Report Type: 
  Country: None (occurrence: None)
  Receive Date: 20111103
  Receipt Date: 20111025
  Transmission Date: 20120403
  Serious: No
  Sender: FDA-Public Use
  Company Number: US-B.I. PHARMACEUTICALS,INC./RIDGEFIELD-2011-BP-24950BP

PATIENT
  Sex: Male

DRUGS (2)
  1. ZANTAC [Suspect]
     Indication: DYSPEPSIA
     Route: 048
  2. ZANTAC [Suspect]

REACTIONS (2)
  - NAUSEA [None]
  - DIZZINESS [None]
